FAERS Safety Report 6004110-7 (Version None)
Quarter: 2008Q4

REPORT INFORMATION
  Report Type: 
  Country: None (occurrence: None)
  Receive Date: 20081216
  Receipt Date: 20081210
  Transmission Date: 20090506
  Serious: No
  Sender: FDA-Public Use
  Company Number: US-JNJFOC-20081203255

PATIENT
  Age: 21 Year
  Sex: Male

DRUGS (1)
  1. INVEGA [Suspect]
     Indication: SCHIZOPHRENIA
     Route: 048

REACTIONS (3)
  - EXTRAPYRAMIDAL DISORDER [None]
  - MUSCULOSKELETAL STIFFNESS [None]
  - TRISMUS [None]
